FAERS Safety Report 9216276 (Version 1)
Quarter: 2013Q2

REPORT INFORMATION
  Report Type: Spontaneous
  Country: US (occurrence: US)
  Receive Date: 20130408
  Receipt Date: 20130408
  Transmission Date: 20140414
  Serious: Yes (Other)
  Sender: FDA-Public Use
  Company Number: US-JNJFOC-20130318682

PATIENT
  Age: 52 Year
  Sex: Female
  Weight: 133.36 kg

DRUGS (3)
  1. XARELTO [Suspect]
     Indication: CEREBROVASCULAR ACCIDENT PROPHYLAXIS
     Route: 048
     Dates: end: 201303
  2. XARELTO [Suspect]
     Indication: ATRIAL FIBRILLATION
     Route: 048
     Dates: end: 201303
  3. BENICAR [Concomitant]
     Indication: HYPERTENSION
     Route: 065

REACTIONS (1)
  - Deep vein thrombosis [Unknown]
